FAERS Safety Report 4708014-9 (Version None)
Quarter: 2005Q3

REPORT INFORMATION
  Report Type: 
  Country: None (occurrence: None)
  Receive Date: 20050707
  Receipt Date: 20050627
  Transmission Date: 20060218
  Serious: Yes (Hospitalization, Other)
  Sender: FDA-Public Use
  Company Number: US-BRISTOL-MYERS SQUIBB COMPANY-13019245

PATIENT
  Age: 67 Year
  Sex: Male
  Weight: 72 kg

DRUGS (4)
  1. CETUXIMAB [Suspect]
     Indication: NON-SMALL CELL LUNG CANCER
     Dosage: ADMINISTERED OVER 1 HOUR. INITIAL TX DATE: 06-JUN-05, 400 MG/M2.
     Route: 042
     Dates: start: 20050614, end: 20050614
  2. CARBOPLATIN [Suspect]
     Indication: NON-SMALL CELL LUNG CANCER
     Dosage: AUC = 6 (728 MG).  ADMINISTERED OVER 30 MINUTES. INITIAL TX DATE: 06-JUN-05.
     Route: 042
     Dates: start: 20050614, end: 20050614
  3. PACLITAXEL [Suspect]
     Indication: NON-SMALL CELL LUNG CANCER
     Dosage: ADMINISTERED OVER 3 HOURS - 1 HOUR AFTER CETUXIMAB INFUSION. INITIAL TX DATE: 06-JUN-05. 427 MG
     Route: 042
     Dates: start: 20050614, end: 20050614
  4. COUMADIN [Concomitant]

REACTIONS (4)
  - HAEMOGLOBIN DECREASED [None]
  - HYPOXIA [None]
  - NEUTROPHIL COUNT DECREASED [None]
  - PULMONARY EMBOLISM [None]
